FAERS Safety Report 14455073 (Version 2)
Quarter: 2018Q1

REPORT INFORMATION
  Report Type: Report from Study
  Country: US (occurrence: US)
  Receive Date: 20180129
  Receipt Date: 20180329
  Transmission Date: 20180509
  Serious: Yes (Hospitalization)
  Sender: FDA-Public Use
  Company Number: US-ACTELION-A-NJ2018-165415

PATIENT
  Age: 70 Year
  Sex: Male
  Weight: 110.2 kg

DRUGS (4)
  1. XARELTO [Concomitant]
     Active Substance: RIVAROXABAN
  2. VELETRI [Suspect]
     Active Substance: EPOPROSTENOL
     Indication: PULMONARY ARTERIAL HYPERTENSION
     Dosage: 8 NG/KG, PER MIN
     Route: 042
  3. REVATIO [Concomitant]
     Active Substance: SILDENAFIL CITRATE
     Dosage: 20 MG, TID
  4. REMODULIN [Concomitant]
     Active Substance: TREPROSTINIL
     Dosage: 16 NG/KG, UNK
     Dates: start: 20180118

REACTIONS (10)
  - Erythema [Unknown]
  - Rash erythematous [Unknown]
  - Headache [Unknown]
  - Rash pruritic [Unknown]
  - Rash [Recovered/Resolved]
  - Dyspnoea [Recovering/Resolving]
  - Rash generalised [Unknown]
  - Pruritus [Recovered/Resolved]
  - Weight decreased [Unknown]
  - Urticaria [Unknown]

NARRATIVE: CASE EVENT DATE: 20180118
